FAERS Safety Report 8114122-5 (Version None)
Quarter: 2012Q1

REPORT INFORMATION
  Report Type: 
  Country: None (occurrence: None)
  Receive Date: 20120204
  Receipt Date: 20120125
  Transmission Date: 20120608
  Serious: Yes (Other)
  Sender: FDA-Public Use
  Company Number: CH-ASTRAZENECA-2011SE76046

PATIENT
  Age: 40 Year
  Sex: Male
  Weight: 84 kg

DRUGS (1)
  1. VIMOVO [Suspect]
     Indication: ARTHRALGIA
     Route: 048
     Dates: start: 20111101, end: 20111101

REACTIONS (3)
  - VERTIGO [None]
  - RASH [None]
  - HEADACHE [None]
